FAERS Safety Report 5940822-9 (Version None)
Quarter: 2008Q4

REPORT INFORMATION
  Report Type: 
  Country: None (occurrence: None)
  Receive Date: 20081030
  Receipt Date: 20081015
  Transmission Date: 20090506
  Serious: Yes (Life-Threatening)
  Sender: FDA-Public Use
  Company Number: TPH-00002

PATIENT
  Age: 46 Year
  Sex: Female

DRUGS (1)
  1. TRIQUILAR 21 [Suspect]
     Indication: ORAL CONTRACEPTION
     Dosage: 1 DF ORAL
     Route: 048
     Dates: start: 20011222, end: 20080128

REACTIONS (2)
  - METRORRHAGIA [None]
  - UTERINE CANCER [None]
